FAERS Safety Report 10685049 (Version 2)
Quarter: 2014Q4

REPORT INFORMATION
  Report Type: Report from Study
  Country: US (occurrence: US)
  Receive Date: 20141231
  Receipt Date: 20141231
  Transmission Date: 20150529
  Serious: Yes (Other)
  Sender: FDA-Public Use
  Company Number: US-BAYER-2014-160711

PATIENT
  Age: 76 Year
  Sex: Female

DRUGS (2)
  1. STIVARGA [Suspect]
     Active Substance: REGORAFENIB
     Indication: RECTAL CANCER
     Dosage: DAILY DOSE 80 MG
     Route: 048
     Dates: start: 20141220
  2. STIVARGA [Suspect]
     Active Substance: REGORAFENIB
     Indication: COLON CANCER
     Dosage: DAILY DOSE 160 MG
     Route: 048
     Dates: start: 20141017, end: 201412

REACTIONS (7)
  - Haemorrhoids [None]
  - Nausea [Recovering/Resolving]
  - Feeding disorder [Recovering/Resolving]
  - Back pain [None]
  - Abdominal pain upper [None]
  - Headache [Recovering/Resolving]
  - Sleep disorder [None]

NARRATIVE: CASE EVENT DATE: 2014
